FAERS Safety Report 6277887-3 (Version None)
Quarter: 2009Q3

REPORT INFORMATION
  Report Type: 
  Country: None (occurrence: None)
  Receive Date: 20090722
  Receipt Date: 20090716
  Transmission Date: 20100115
  Serious: Yes (Death, Hospitalization)
  Sender: FDA-Public Use
  Company Number: JP-MERCK-0907USA01635

PATIENT
  Age: 30 Year
  Sex: Male

DRUGS (18)
  1. DECADRON [Suspect]
     Indication: LANGERHANS' CELL GRANULOMATOSIS
     Route: 048
     Dates: start: 19950101, end: 19950101
  2. PREDNISOLONE [Suspect]
     Indication: LANGERHANS' CELL GRANULOMATOSIS
     Route: 065
  3. PREDNISOLONE [Suspect]
     Route: 065
     Dates: start: 19920101, end: 19930101
  4. PREDNISOLONE [Suspect]
     Route: 065
     Dates: start: 19950101, end: 19950101
  5. ENDOXAN [Suspect]
     Indication: LANGERHANS' CELL GRANULOMATOSIS
     Route: 065
     Dates: start: 19920101, end: 19930101
  6. FILDESIN [Suspect]
     Indication: LANGERHANS' CELL GRANULOMATOSIS
     Route: 042
     Dates: start: 19920101, end: 19930101
  7. PIRARUBICIN [Suspect]
     Indication: LANGERHANS' CELL GRANULOMATOSIS
     Route: 042
     Dates: start: 19920101, end: 19930101
  8. METHOTREXATE [Suspect]
     Indication: LANGERHANS' CELL GRANULOMATOSIS
     Route: 065
     Dates: start: 19930101, end: 19940101
  9. INTERFERON ALFA [Suspect]
     Indication: LANGERHANS' CELL GRANULOMATOSIS
     Route: 042
     Dates: start: 19940101, end: 19950101
  10. NOVANTRONE [Suspect]
     Indication: LANGERHANS' CELL GRANULOMATOSIS
     Route: 042
     Dates: start: 19950101, end: 19950101
  11. ETOPOSIDE [Suspect]
     Indication: LANGERHANS' CELL GRANULOMATOSIS
     Route: 065
     Dates: start: 19950101, end: 19950101
  12. ETOPOSIDE [Suspect]
     Route: 065
  13. CARBOPLATIN [Suspect]
     Indication: LANGERHANS' CELL GRANULOMATOSIS
     Route: 042
     Dates: start: 19950101, end: 19950101
  14. METHYLPREDNISOLONE [Suspect]
     Indication: LANGERHANS' CELL GRANULOMATOSIS
     Route: 065
     Dates: start: 19950101, end: 19950101
  15. CYCLOSPORINE [Suspect]
     Indication: LANGERHANS' CELL GRANULOMATOSIS
     Route: 065
     Dates: start: 19960101, end: 19970101
  16. HYDREA [Suspect]
     Indication: LANGERHANS' CELL GRANULOMATOSIS
     Route: 048
     Dates: start: 19970101, end: 19970101
  17. EXAL [Suspect]
     Indication: LANGERHANS' CELL GRANULOMATOSIS
     Route: 042
     Dates: start: 19970101, end: 19970101
  18. PERAZOLIN [Suspect]
     Indication: LANGERHANS' CELL GRANULOMATOSIS
     Route: 048
     Dates: start: 19970101

REACTIONS (4)
  - IMMUNOSUPPRESSION [None]
  - MALIGNANT FIBROUS HISTIOCYTOMA [None]
  - MUCORMYCOSIS [None]
  - PNEUMONIA [None]
